FAERS Safety Report 4795405-3 (Version None)
Quarter: 2005Q4

REPORT INFORMATION
  Report Type: 
  Country: None (occurrence: None)
  Receive Date: 20051007
  Receipt Date: 20050929
  Transmission Date: 20060501
  Serious: Yes (Death)
  Sender: FDA-Public Use
  Company Number: B0395596A

PATIENT
  Age: 17 Year
  Sex: 0

DRUGS (5)
  1. ALKERAN [Suspect]
     Indication: NEUROBLASTOMA
     Dosage: 140 MG/M2 / CYCLIC / INTRAVENOUS BOLUS
     Route: 040
  2. MYLERAN [Suspect]
     Indication: NEUROBLASTOMA
     Dosage: 37.5 MG/M2 / CYCLIC / ORAL
     Route: 048
  3. RADIOTHERAPY (FORMULATION UNKNOWN) (RADIOTHERAPY) [Suspect]
  4. CANCER CHEMOTHERAPY (FORMULATION UKNOWN) (CANCER CHEMOTHERAPY) [Suspect]
  5. SURGERY [Concomitant]

REACTIONS (2)
  - DRUG TOXICITY [None]
  - PULMONARY VENO-OCCLUSIVE DISEASE [None]
